FAERS Safety Report 4475663-5 (Version None)
Quarter: 2004Q3

REPORT INFORMATION
  Report Type: 
  Country: None (occurrence: None)
  Receive Date: 20040923
  Receipt Date: 20040720
  Transmission Date: 20050211
  Serious: No
  Sender: FDA-Public Use
  Company Number: USA040772715

PATIENT
  Age: 79 Year
  Sex: Female
  Weight: 68 kg

DRUGS (1)
  1. FORTEO [Suspect]
     Indication: BONE DISORDER
     Dates: start: 20040713

REACTIONS (4)
  - BACK PAIN [None]
  - CONTUSION [None]
  - JOINT SPRAIN [None]
  - ROAD TRAFFIC ACCIDENT [None]
